FAERS Safety Report 14704183 (Version 1)
Quarter: 2018Q2

REPORT INFORMATION
  Report Type: Spontaneous
  Country: US (occurrence: US)
  Receive Date: 20180402
  Receipt Date: 20180402
  Transmission Date: 20180711
  Serious: No
  Sender: FDA-Public Use
  Company Number: US-ALLERGAN-1706631US

PATIENT
  Age: 59 Year
  Sex: Female

DRUGS (2)
  1. CANASA [Suspect]
     Active Substance: MESALAMINE
     Indication: PROCTITIS ULCERATIVE
     Dosage: 1 DF, QHS
     Route: 054
  2. CANASA [Suspect]
     Active Substance: MESALAMINE
     Dosage: 1 DF, QHS
     Route: 054

REACTIONS (2)
  - Anorectal discomfort [Recovered/Resolved]
  - Drug ineffective [Unknown]

NARRATIVE: CASE EVENT DATE: 2016
